FAERS Safety Report 8832142 (Version 1)
Quarter: 2012Q4

REPORT INFORMATION
  Report Type: 
  Country: BR (occurrence: BR)
  Receive Date: 20121009
  Receipt Date: 20121009
  Transmission Date: 20130627
  Serious: Yes (Hospitalization, Other)
  Sender: FDA-Public Use
  Company Number: BR-ROCHE-1137513

PATIENT
  Sex: Male
  Weight: 57.8 kg

DRUGS (11)
  1. PEGASYS [Suspect]
     Indication: HEPATITIS C
     Route: 065
     Dates: start: 200802
  2. PEGASYS [Suspect]
     Route: 065
     Dates: start: 20120515
  3. RIBAVIRIN [Suspect]
     Indication: HEPATITIS C
     Route: 065
     Dates: start: 200802
  4. RIBAVIRIN [Suspect]
     Route: 065
     Dates: start: 200902
  5. RIBAVIRIN [Suspect]
     Dosage: 2 tablets in morning and 2 tablets in afternoon
     Route: 065
     Dates: start: 201205
  6. VICTRELIS [Suspect]
     Indication: PRODUCT USED FOR UNKNOWN INDICATION
     Route: 048
     Dates: start: 20120508
  7. VICTRELIS [Suspect]
     Dosage: 4 cap after breakfast, 4 after lunch and 4 after dinner
     Route: 065
     Dates: start: 20120515
  8. INTERFERON ALFA-2A [Suspect]
     Indication: HEPATITIS C
     Route: 065
     Dates: start: 200902
  9. LEVOTHYROXINE SODIUM [Concomitant]
     Indication: AUTOIMMUNE THYROIDITIS
     Route: 065
  10. PANTOPRAZOLE [Concomitant]
     Indication: ABDOMINAL PAIN UPPER
     Route: 048
  11. PROPRANOLOL [Concomitant]
     Indication: PORTAL HYPERTENSION
     Route: 048
     Dates: start: 2011

REACTIONS (14)
  - Ascites [Not Recovered/Not Resolved]
  - Drug ineffective [Unknown]
  - Abscess [Recovered/Resolved]
  - Confusional state [Recovered/Resolved]
  - Speech disorder [Recovered/Resolved]
  - Body temperature decreased [Recovered/Resolved]
  - Asthenia [Recovered/Resolved]
  - Dysstasia [Not Recovered/Not Resolved]
  - Feeding disorder [Not Recovered/Not Resolved]
  - Anaemia [Recovered/Resolved]
  - Weight decreased [Not Recovered/Not Resolved]
  - Oedema peripheral [Not Recovered/Not Resolved]
  - Thyroid function test abnormal [Recovered/Resolved]
  - Dry mouth [Recovered/Resolved]
